FAERS Safety Report 18509032 (Version 1)
Quarter: 2020Q4

REPORT INFORMATION
  Report Type: Spontaneous
  Country: US (occurrence: US)
  Receive Date: 20201117
  Receipt Date: 20201117
  Transmission Date: 20210114
  Serious: Yes (Other)
  Sender: FDA-Public Use
  Company Number: US-009507513-2011USA006710

PATIENT
  Age: 829 Month
  Sex: Female
  Weight: 110.2 kg

DRUGS (9)
  1. PRINIVIL [Suspect]
     Active Substance: LISINOPRIL
     Indication: BLOOD PRESSURE MEASUREMENT
     Route: 048
     Dates: start: 201607
  2. ANASTROZOLE. [Suspect]
     Active Substance: ANASTROZOLE
     Indication: OVARIAN CANCER
     Dosage: 1 MILLIGRAM, QD
     Route: 048
     Dates: start: 201512, end: 201612
  3. EXEMESTANE. [Concomitant]
     Active Substance: EXEMESTANE
  4. TAMOXIFEN [Suspect]
     Active Substance: TAMOXIFEN
     Indication: NEOPLASM MALIGNANT
     Dosage: DAILY
     Route: 048
     Dates: start: 201610
  5. ALPRAZOLAM. [Concomitant]
     Active Substance: ALPRAZOLAM
     Indication: STRESS
     Dosage: 25 MG TWICE A DAY
     Route: 048
  6. OLAPARIB. [Suspect]
     Active Substance: OLAPARIB
     Indication: OVARIAN CANCER
     Dosage: 800 MILLIGRAM, QD
     Route: 048
     Dates: start: 201610, end: 201611
  7. HYDROCODONE [Concomitant]
     Active Substance: HYDROCODONE
     Indication: PAIN
     Dosage: 7.5 MG, ONE TO TWO TIMES A DAY
     Route: 048
     Dates: start: 2011
  8. OLAPARIB. [Suspect]
     Active Substance: OLAPARIB
     Dosage: 800 MILLIGRAM, QD
     Route: 048
     Dates: start: 201611, end: 201612
  9. OLAPARIB. [Suspect]
     Active Substance: OLAPARIB
     Dosage: 400 MILLIGRAM, QD
     Route: 048
     Dates: start: 201612, end: 20170220

REACTIONS (16)
  - Blood pressure abnormal [Unknown]
  - Off label use [Unknown]
  - Dyspnoea [Unknown]
  - Product use in unapproved indication [Unknown]
  - Malignant neoplasm progression [Unknown]
  - Swelling face [Unknown]
  - Illness [Unknown]
  - Intentional product misuse [Unknown]
  - Pruritus [Unknown]
  - Stress [Unknown]
  - Dry mouth [Unknown]
  - Rash macular [Unknown]
  - Asthenia [Unknown]
  - Circumstance or information capable of leading to medication error [Unknown]
  - Cough [Unknown]
  - Nausea [Unknown]

NARRATIVE: CASE EVENT DATE: 201612
